FAERS Safety Report 9613802 (Version 1)
Quarter: 2013Q4

REPORT INFORMATION
  Report Type: Spontaneous
  Country: US (occurrence: US)
  Receive Date: 20131010
  Receipt Date: 20131010
  Transmission Date: 20140711
  Serious: No
  Sender: FDA-Public Use
  Company Number: US-ALLERGAN-1218386US

PATIENT
  Sex: Female

DRUGS (1)
  1. VANIQA [Suspect]
     Indication: HAIR GROWTH ABNORMAL
     Route: 061

REACTIONS (2)
  - Product quality issue [Unknown]
  - Drug effect decreased [Not Recovered/Not Resolved]
